FAERS Safety Report 16554928 (Version 2)
Quarter: 2019Q3

REPORT INFORMATION
  Report Type: Spontaneous
  Country: AT (occurrence: AT)
  Receive Date: 20190710
  Receipt Date: 20190730
  Transmission Date: 20191004
  Serious: Yes (Hospitalization, Other)
  Sender: FDA-Public Use
  Company Number: AT-ASTRAZENECA-2019SE95482

PATIENT
  Age: 55 Year
  Sex: Female

DRUGS (20)
  1. LEPONEX [Suspect]
     Active Substance: CLOZAPINE
     Indication: SCHIZOPHRENIA
     Dosage: REDUCED UNKNOWN
     Route: 065
  2. LEPONEX [Suspect]
     Active Substance: CLOZAPINE
     Indication: SCHIZOPHRENIA
     Dosage: 75.0MG UNKNOWN
     Route: 065
     Dates: start: 20190506, end: 20190506
  3. AKINETON [Suspect]
     Active Substance: BIPERIDEN HYDROCHLORIDE
     Dosage: 8.0MG UNKNOWN
     Route: 065
     Dates: start: 2014, end: 20190506
  4. AGLANDIN [Suspect]
     Active Substance: TAMSULOSIN HYDROCHLORIDE
     Dosage: 0.4MG UNKNOWN
     Route: 065
     Dates: start: 2014
  5. INDERAL [Suspect]
     Active Substance: PROPRANOLOL HYDROCHLORIDE
     Indication: SCHIZOPHRENIA
     Dosage: 30-40 MG
     Route: 065
     Dates: start: 2018, end: 20190512
  6. LEPONEX [Suspect]
     Active Substance: CLOZAPINE
     Indication: SCHIZOPHRENIA
     Dosage: 25-50 MG UNKNOWN
     Route: 065
     Dates: start: 20190423, end: 20190428
  7. PREGABALIN. [Suspect]
     Active Substance: PREGABALIN
     Dosage: 400.0MG UNKNOWN
     Route: 065
     Dates: start: 20190513
  8. SEROQUEL XR [Suspect]
     Active Substance: QUETIAPINE FUMARATE
     Dosage: 700.0MG UNKNOWN
     Route: 048
     Dates: start: 2014, end: 201905
  9. LEPONEX [Suspect]
     Active Substance: CLOZAPINE
     Indication: SCHIZOPHRENIA
     Dosage: 125.0MG UNKNOWN
     Route: 065
     Dates: start: 20190503, end: 20190505
  10. RISPERDAL [Suspect]
     Active Substance: RISPERIDONE
     Indication: SCHIZOPHRENIA
     Dosage: 6.0MG UNKNOWN
     Route: 048
     Dates: start: 2018, end: 20190423
  11. RISPERDAL [Suspect]
     Active Substance: RISPERIDONE
     Indication: SCHIZOPHRENIA
     Dosage: REDUCED UNKNOWN
     Route: 048
  12. RISPERDAL [Suspect]
     Active Substance: RISPERIDONE
     Indication: SCHIZOPHRENIA
     Dosage: 2-4 MG UNKNOWN
     Route: 048
     Dates: start: 20190424, end: 20190521
  13. PREGABALIN. [Suspect]
     Active Substance: PREGABALIN
     Dosage: REDUCED UNKNOWN
     Route: 065
  14. PREGABALIN. [Suspect]
     Active Substance: PREGABALIN
     Dosage: INCREASED UNKNOWN
     Route: 065
  15. LEPONEX [Suspect]
     Active Substance: CLOZAPINE
     Indication: SCHIZOPHRENIA
     Dosage: 75-100 MG UNKNOWN
     Route: 065
     Dates: start: 20190429, end: 20190502
  16. PREGABALIN. [Suspect]
     Active Substance: PREGABALIN
     Dosage: 600.0MG UNKNOWN
     Route: 065
     Dates: start: 20190429, end: 20190512
  17. THYREX [Concomitant]
     Active Substance: LEVOTHYROXINE SODIUM
     Dates: start: 2014
  18. DELPRAL [Suspect]
     Active Substance: TIAPRIDE HYDROCHLORIDE
     Indication: SCHIZOPHRENIA
     Dosage: 200.0MG UNKNOWN
     Route: 065
     Dates: start: 20190419, end: 20190513
  19. LEPONEX [Suspect]
     Active Substance: CLOZAPINE
     Indication: SCHIZOPHRENIA
     Dosage: 75.0MG UNKNOWN
     Route: 065
     Dates: start: 20190508, end: 20190512
  20. PREGABALIN. [Suspect]
     Active Substance: PREGABALIN
     Dosage: 400.0MG UNKNOWN
     Route: 065
     Dates: start: 2018, end: 20190428

REACTIONS (3)
  - Delirium [Recovered/Resolved]
  - Dyskinesia [Recovering/Resolving]
  - Pneumonia [Unknown]

NARRATIVE: CASE EVENT DATE: 20190505
